FAERS Safety Report 18244550 (Version 2)
Quarter: 2020Q4

REPORT INFORMATION
  Report Type: Report from Study
  Country: None (occurrence: US)
  Receive Date: 20200909
  Receipt Date: 20201007
  Transmission Date: 20210113
  Serious: Yes (Hospitalization, Other)
  Sender: FDA-Public Use
  Company Number: US-ABBVIE-20K-163-3551013-00

PATIENT
  Age: 60 Year
  Sex: Female
  Weight: 65.83 kg

DRUGS (2)
  1. HUMIRA [Suspect]
     Active Substance: ADALIMUMAB
     Indication: RHEUMATOID ARTHRITIS
     Route: 058
     Dates: start: 201805, end: 201808
  2. HUMIRA [Suspect]
     Active Substance: ADALIMUMAB
     Route: 058
     Dates: start: 202009

REACTIONS (5)
  - Joint injury [Unknown]
  - Knee arthroplasty [Unknown]
  - Arthroscopy [Recovering/Resolving]
  - Fall [Recovered/Resolved]
  - Patella fracture [Recovering/Resolving]

NARRATIVE: CASE EVENT DATE: 201808
